FAERS Safety Report 12295410 (Version 1)
Quarter: 2016Q2

REPORT INFORMATION
  Report Type: Spontaneous
  Country: US (occurrence: US)
  Receive Date: 20160422
  Receipt Date: 20160422
  Transmission Date: 20160815
  Serious: Yes (Other)
  Sender: FDA-Public Use
  Company Number: US-PURDUE PHARMA-USA-2015-0127275

PATIENT
  Sex: Female

DRUGS (4)
  1. HYDROCODONE [Suspect]
     Active Substance: HYDROCODONE
     Indication: SELF-MEDICATION
     Route: 048
  2. MARIJUANA [Suspect]
     Active Substance: CANNABIS SATIVA SUBSP. INDICA TOP
     Indication: SELF-MEDICATION
     Route: 055
  3. OXYCODONE HCL CR TABLETS (SIMILAR TO NDA 22-272) [Suspect]
     Active Substance: OXYCODONE HYDROCHLORIDE
     Indication: SELF-MEDICATION
     Route: 048
  4. HEROIN [Suspect]
     Active Substance: DIACETYLMORPHINE
     Indication: SELF-MEDICATION
     Route: 065

REACTIONS (2)
  - Drug dependence [Recovered/Resolved]
  - Substance abuse [Recovered/Resolved]
